FAERS Safety Report 9339281 (Version 1)
Quarter: 2013Q2

REPORT INFORMATION
  Report Type: Spontaneous
  Country: ES (occurrence: ES)
  Receive Date: 20130610
  Receipt Date: 20130610
  Transmission Date: 20140414
  Serious: Yes (Other)
  Sender: FDA-Public Use
  Company Number: ES-MERCK-1305ESP015429

PATIENT
  Age: 63 Year
  Sex: Male
  Weight: 69 kg

DRUGS (6)
  1. EZETROL [Suspect]
     Indication: TYPE IIA HYPERLIPIDAEMIA
     Dosage: 10 MG, QD
     Route: 048
     Dates: start: 200310
  2. EFENSOL [Concomitant]
     Dosage: 3G/ SACHET, FREQUENCY: 2 SACHETS/DAY
     Route: 048
  3. CARDYL [Concomitant]
     Dosage: 40 MG, AT DINNER
     Route: 048
  4. ADIRO [Concomitant]
     Dosage: 100 MG, QD, FORMULATION: GASTRORESISTANT TABLETS
     Route: 048
  5. OMEPRAZOLE [Concomitant]
     Dosage: 20 MG, QD
     Route: 048
  6. OMNIC [Concomitant]
     Dosage: .4 MG, QD
     Route: 048

REACTIONS (1)
  - Aphasia [Not Recovered/Not Resolved]
